FAERS Safety Report 14744206 (Version 7)
Quarter: 2019Q2

REPORT INFORMATION
  Report Type: Spontaneous
  Country: US (occurrence: US)
  Receive Date: 20180411
  Receipt Date: 20190415
  Transmission Date: 20190711
  Serious: No
  Sender: FDA-Public Use
  Company Number: US-BRISTOL-MYERS SQUIBB COMPANY-BMS-2018-032380

PATIENT
  Age: 58 Year
  Sex: Male
  Weight: 119.73 kg

DRUGS (1)
  1. ORENCIA [Suspect]
     Active Substance: ABATACEPT
     Indication: RHEUMATOID ARTHRITIS
     Dosage: 125 MG, QWK
     Route: 058
     Dates: start: 201709

REACTIONS (6)
  - Fall [Unknown]
  - Musculoskeletal stiffness [Unknown]
  - Product dose omission [Unknown]
  - Arthropathy [Unknown]
  - Head injury [Unknown]
  - Back pain [Unknown]

NARRATIVE: CASE EVENT DATE: 20181020
